FAERS Safety Report 9086044 (Version 1)
Quarter: 2013Q1

REPORT INFORMATION
  Report Type: Spontaneous
  Country: NL (occurrence: NL)
  Receive Date: 20130131
  Receipt Date: 20130131
  Transmission Date: 20140127
  Serious: Yes (Other)
  Sender: FDA-Public Use
  Company Number: NL-PFIZER INC-2013036275

PATIENT
  Age: 81 Year
  Sex: Male

DRUGS (1)
  1. ATORVASTATINE PFIZER [Suspect]
     Dosage: UNK

REACTIONS (1)
  - Haematochezia [Unknown]
